FAERS Safety Report 10703548 (Version 2)
Quarter: 2015Q1

REPORT INFORMATION
  Report Type: Spontaneous
  Country: FR (occurrence: FR)
  Receive Date: 20150112
  Receipt Date: 20150205
  Transmission Date: 20150721
  Serious: Yes (Hospitalization)
  Sender: FDA-Public Use
  Company Number: PHHY2015FR002147

PATIENT
  Age: 46 Year
  Sex: Female

DRUGS (5)
  1. DIPHANTOINE [Interacting]
     Active Substance: PHENYTOIN
     Indication: EPILEPSY
     Dosage: UNK
     Route: 048
     Dates: start: 201408
  2. DI-HYDAN [Concomitant]
     Active Substance: PHENYTOIN
     Dosage: 300 MG, QD
     Route: 065
     Dates: start: 20141015
  3. DIPHANTOINE [Interacting]
     Active Substance: PHENYTOIN
     Dosage: 150 MG, QD
     Route: 048
  4. TRILEPTAL [Suspect]
     Active Substance: OXCARBAZEPINE
     Indication: EPILEPSY
     Dosage: (600 MG IN THE MORNING, 450 MG AT NOON AND 600 MG IN THE EVENING) 1650 MG, DAILY
     Route: 048
  5. DI-HYDAN [Concomitant]
     Active Substance: PHENYTOIN
     Indication: EPILEPSY
     Route: 065

REACTIONS (9)
  - Epilepsy [Recovered/Resolved]
  - Visual impairment [Recovered/Resolved]
  - Drug interaction [Unknown]
  - Balance disorder [Recovered/Resolved]
  - Asthenia [Recovered/Resolved]
  - Constipation [Recovered/Resolved]
  - Fall [Recovered/Resolved]
  - Vomiting [Recovered/Resolved]
  - Amnesia [Recovered/Resolved]

NARRATIVE: CASE EVENT DATE: 201408
